FAERS Safety Report 6182052-4 (Version None)
Quarter: 2009Q2

REPORT INFORMATION
  Report Type: 
  Country: None (occurrence: None)
  Receive Date: 20090507
  Receipt Date: 20090428
  Transmission Date: 20091009
  Serious: Yes (Hospitalization)
  Sender: FDA-Public Use
  Company Number: GB-SP-2009-01655

PATIENT
  Age: 57 Year
  Sex: Male

DRUGS (4)
  1. IMMUCYST [Suspect]
     Indication: BLADDER CANCER
     Route: 043
     Dates: start: 20081231, end: 20090114
  2. BISOPROLOL FUMARATE [Concomitant]
  3. SIMVASTATIN [Concomitant]
  4. ASPIRIN [Concomitant]

REACTIONS (5)
  - BACK PAIN [None]
  - CHILLS [None]
  - HYPERHIDROSIS [None]
  - PYREXIA [None]
  - TUBERCULOSIS [None]
